FAERS Safety Report 9341716 (Version 1)
Quarter: 2013Q2

REPORT INFORMATION
  Report Type: Spontaneous
  Country: ES (occurrence: ES)
  Receive Date: 20130611
  Receipt Date: 20130611
  Transmission Date: 20140414
  Serious: Yes (Other)
  Sender: FDA-Public Use
  Company Number: ES-B.I. PHARMACEUTICALS,INC./RIDGEFIELD-2013-BI-16553YA

PATIENT
  Sex: 0

DRUGS (3)
  1. TAMSULOSINA [Suspect]
     Route: 065
  2. TERAZOSIN [Suspect]
     Route: 065
  3. SAW PALMETTO [Suspect]
     Route: 065

REACTIONS (1)
  - Choroidal detachment [Unknown]
